FAERS Safety Report 20394322 (Version 1)
Quarter: 2022Q1

REPORT INFORMATION
  Report Type: Spontaneous
  Country: US (occurrence: US)
  Receive Date: 20220129
  Receipt Date: 20220129
  Transmission Date: 20220423
  Serious: Yes (Hospitalization, Other)
  Sender: FDA-Public Use
  Company Number: US-BION-010270

PATIENT
  Age: 47 Year
  Sex: Female

DRUGS (2)
  1. AMPHETAMINE SULFATE [Suspect]
     Active Substance: AMPHETAMINE SULFATE
     Dosage: NON-INTRAVENOUS
  2. HEROIN [Suspect]
     Active Substance: DIAMORPHINE

REACTIONS (3)
  - Drug abuse [Unknown]
  - Renal infarct [Recovered/Resolved]
  - Cellulitis [Not Recovered/Not Resolved]
